FAERS Safety Report 19040585 (Version 2)
Quarter: 2021Q2

REPORT INFORMATION
  Report Type: Report from Study
  Country: CA (occurrence: CA)
  Receive Date: 20210322
  Receipt Date: 20210524
  Transmission Date: 20210717
  Serious: Yes (Death)
  Sender: FDA-Public Use
  Company Number: CA-ASTRAZENECA-2021A164493

PATIENT
  Sex: Female

DRUGS (1)
  1. TAGRISSO [Suspect]
     Active Substance: OSIMERTINIB
     Indication: NON-SMALL CELL LUNG CANCER METASTATIC
     Route: 048
     Dates: start: 20200513, end: 202006

REACTIONS (5)
  - Coagulopathy [Fatal]
  - Acute kidney injury [Fatal]
  - Septic shock [Fatal]
  - Complications of transplanted liver [Fatal]
  - Malignant neoplasm progression [Fatal]
